APPROVED DRUG PRODUCT: SILDENAFIL CITRATE
Active Ingredient: SILDENAFIL CITRATE
Strength: EQ 10MG BASE/ML
Dosage Form/Route: FOR SUSPENSION;ORAL
Application: A211638 | Product #001
Applicant: LUPIN LTD
Approved: Mar 23, 2022 | RLD: No | RS: No | Type: DISCN